FAERS Safety Report 17571511 (Version 1)
Quarter: 2020Q1

REPORT INFORMATION
  Report Type: Spontaneous
  Country: US (occurrence: US)
  Receive Date: 20200323
  Receipt Date: 20200323
  Transmission Date: 20200409
  Serious: Yes (Death)
  Sender: FDA-Public Use
  Company Number: US-IPSEN BIOPHARMACEUTICALS, INC.-2020-05884

PATIENT
  Age: 99 Year
  Sex: Female

DRUGS (12)
  1. LOSARTAN/HCT [Concomitant]
     Active Substance: HYDROCHLOROTHIAZIDE\LOSARTAN POTASSIUM
     Dosage: 100-25
  2. VICODIN ES [Concomitant]
     Active Substance: ACETAMINOPHEN\HYDROCODONE BITARTRATE
     Dosage: 7.5-750
  3. LANTUS [Concomitant]
     Active Substance: INSULIN GLARGINE
     Dosage: SOLOS SOP 100 PER UNIT
  4. PROCTOZONE [Concomitant]
     Active Substance: HYDROCORTISONE
     Dosage: CRE 2.5 PERCENT
  5. VITAMIN D [Concomitant]
     Active Substance: VITAMIN D NOS
     Dosage: 50000 UNITS
  6. TRIAMCINOLON [Concomitant]
     Dosage: 0.5 PERCENT
  7. NATEGLINIDE. [Concomitant]
     Active Substance: NATEGLINIDE
  8. CLARITIN [Concomitant]
     Active Substance: LORATADINE
  9. SOMATULINE DEPOT [Suspect]
     Active Substance: LANREOTIDE ACETATE
     Indication: ACROMEGALY
     Route: 058
  10. AMOXICILLIN. [Concomitant]
     Active Substance: AMOXICILLIN
  11. LEVOTHYROXIN [Concomitant]
     Active Substance: LEVOTHYROXINE
  12. CITALOPRAM [Concomitant]
     Active Substance: CITALOPRAM HYDROBROMIDE

REACTIONS (1)
  - Death [Fatal]

NARRATIVE: CASE EVENT DATE: 20200312
